FAERS Safety Report 5289050-3 (Version None)
Quarter: 2007Q1

REPORT INFORMATION
  Report Type: 
  Country: None (occurrence: None)
  Receive Date: 20070118
  Receipt Date: 20060929
  Transmission Date: 20070707
  Serious: Yes (Other)
  Sender: FDA-Public Use
  Company Number: HQWYE502803OCT06

PATIENT
  Age: 73 Year
  Sex: Female
  Weight: 86.26 kg

DRUGS (5)
  1. ADVIL PM [Suspect]
     Indication: INSOMNIA
     Dosage: 2 CAPLETS X 1, ORAL
     Route: 048
     Dates: start: 20060927, end: 20060927
  2. ADVIL PM [Suspect]
     Indication: PAIN
     Dosage: 2 CAPLETS X 1, ORAL
     Route: 048
     Dates: start: 20060927, end: 20060927
  3. LIPITOR [Concomitant]
  4. MULTIVITAMINS (ASCORBIC ACID/ERGOCALCIFEROL/FOLIC ACID/NICOTINAMIDE/PA [Concomitant]
  5. REQUIP [Concomitant]

REACTIONS (2)
  - DRUG EFFECT DECREASED [None]
  - RESTLESSNESS [None]
